FAERS Safety Report 25510032 (Version 1)
Quarter: 2025Q3

REPORT INFORMATION
  Report Type: Spontaneous
  Country: US (occurrence: US)
  Receive Date: 20250703
  Receipt Date: 20250703
  Transmission Date: 20251020
  Serious: No
  Sender: BLUEPRINT MEDICINES
  Company Number: US-Blueprint Medicines Corporation-2025-AER-01429

PATIENT
  Age: 66 Year
  Sex: Male

DRUGS (1)
  1. AYVAKIT [Suspect]
     Active Substance: AVAPRITINIB
     Indication: Gastrointestinal stromal tumour
     Route: 065

REACTIONS (4)
  - Eye irritation [Unknown]
  - Neoplasm [Unknown]
  - Lacrimation increased [Unknown]
  - Eye pruritus [Unknown]

NARRATIVE: CASE EVENT DATE: 20250601
